FAERS Safety Report 8545676-2 (Version None)
Quarter: 2012Q3

REPORT INFORMATION
  Report Type: 
  Country: None (occurrence: None)
  Receive Date: 20120727
  Receipt Date: 20120718
  Transmission Date: 20120928
  Serious: Yes (Hospitalization)
  Sender: FDA-Public Use
  Company Number: US-PFIZER INC-2012157101

PATIENT
  Sex: Female
  Weight: 56.7 kg

DRUGS (18)
  1. SPIRIVA [Concomitant]
     Dosage: UNK
     Dates: start: 20110801, end: 20120403
  2. ALEVE [Concomitant]
     Dosage: UNK
     Dates: start: 20120528
  3. NAPROXEN [Concomitant]
     Dosage: UNK
     Dates: start: 20120607, end: 20120619
  4. AMLODIPINE [Concomitant]
     Dosage: UNK
     Dates: start: 19860101
  5. VENTOLIN [Concomitant]
     Dosage: UNK
     Dates: start: 20120404
  6. HYDROCHLOROTHIAZIDE [Concomitant]
     Dosage: UNK
     Dates: start: 19860101
  7. XANAX [Concomitant]
     Dosage: UNK
     Dates: start: 20110901
  8. ZETIA [Concomitant]
     Dosage: UNK
     Dates: start: 19870101
  9. VITAMIN B-12 [Concomitant]
     Dosage: UNK
     Dates: start: 20120324
  10. VICODIN [Concomitant]
     Dosage: UNK
     Dates: start: 20120614
  11. MIRALAX [Concomitant]
     Dosage: UNK
     Dates: start: 20120612
  12. MULTI-VITAMINS [Concomitant]
     Dosage: UNK
     Dates: start: 20000101
  13. CITRACAL + D [Concomitant]
     Dosage: UNK
     Dates: start: 20110201
  14. BIOTENE MOUTHWASH [Concomitant]
     Dosage: UNK
     Dates: start: 20120503
  15. LEVAQUIN [Concomitant]
     Dosage: UNK
     Dates: start: 20120607, end: 20120615
  16. SALONPAS LINIMENT [Concomitant]
     Dosage: UNK
     Dates: start: 20120624
  17. VARENICLINE TARTRATE [Suspect]
     Indication: SMOKING CESSATION THERAPY
     Dosage: UNK
     Route: 048
     Dates: start: 20120414, end: 20120620
  18. ACETYLSALICYLIC ACID [Concomitant]
     Dosage: UNK
     Dates: start: 20100101

REACTIONS (2)
  - NON-CARDIAC CHEST PAIN [None]
  - HYPERTENSION [None]
